FAERS Safety Report 4268777-6 (Version None)
Quarter: 2004Q1

REPORT INFORMATION
  Report Type: 
  Country: None (occurrence: None)
  Receive Date: 20040112
  Receipt Date: 20040112
  Transmission Date: 20041129
  Serious: Yes (Other)
  Sender: FDA-Public Use
  Company Number: None

PATIENT

DRUGS (1)
  1. CHLORAL HYDRATE 500MG/5ML PHARMACEUTICAL ASSOCIATES [Suspect]
     Indication: SEDATION
     Dosage: ORAL
     Route: 048
     Dates: start: 20031231, end: 20040109

REACTIONS (2)
  - DRUG INEFFECTIVE [None]
  - PHARMACEUTICAL PRODUCT COMPLAINT [None]
